FAERS Safety Report 16260970 (Version 1)
Quarter: 2019Q2

REPORT INFORMATION
  Report Type: Spontaneous
  Country: US (occurrence: US)
  Receive Date: 20190501
  Receipt Date: 20190501
  Transmission Date: 20190711
  Serious: No
  Sender: FDA-Public Use
  Company Number: US-PFIZER INC-2019182138

PATIENT
  Age: 50 Year
  Sex: Female
  Weight: 117.48 kg

DRUGS (2)
  1. NEURONTIN [Suspect]
     Active Substance: GABAPENTIN
     Indication: FIBROMYALGIA
     Dosage: 1200 MG, 1X/DAY (300MG FOUR CAPSULES BY MOUTH NIGHTLY)
     Route: 048
  2. NEURONTIN [Suspect]
     Active Substance: GABAPENTIN
     Indication: RESTLESS LEGS SYNDROME

REACTIONS (2)
  - Dysstasia [Unknown]
  - Malaise [Unknown]
